FAERS Safety Report 10789694 (Version 1)
Quarter: 2015Q1

REPORT INFORMATION
  Report Type: Report from Study
  Country: CA (occurrence: CA)
  Receive Date: 20150212
  Receipt Date: 20150212
  Transmission Date: 20150721
  Serious: Yes (Death, Hospitalization)
  Sender: FDA-Public Use
  Company Number: CA-JNJFOC-20150202283

PATIENT
  Age: 37 Year
  Sex: Male

DRUGS (4)
  1. COCAINE [Suspect]
     Active Substance: COCAINE
     Indication: PRODUCT USED FOR UNKNOWN INDICATION
     Route: 065
  2. ACETAMINOPHEN. [Suspect]
     Active Substance: ACETAMINOPHEN
     Indication: PRODUCT USED FOR UNKNOWN INDICATION
     Route: 065
     Dates: start: 19980615, end: 19980629
  3. ACETAMINOPHEN. [Suspect]
     Active Substance: ACETAMINOPHEN
     Route: 065
  4. AMPHETAMINES [Suspect]
     Active Substance: AMPHETAMINE
     Indication: PRODUCT USED FOR UNKNOWN INDICATION
     Route: 065

REACTIONS (5)
  - Colitis ischaemic [Fatal]
  - Staphylococcal sepsis [Fatal]
  - Renal failure [Fatal]
  - Cerebral haemorrhage [Fatal]
  - Overdose [Fatal]
